APPROVED DRUG PRODUCT: CALCITRIOL
Active Ingredient: CALCITRIOL
Strength: 0.002MG/ML
Dosage Form/Route: INJECTABLE;INJECTION
Application: A078066 | Product #002
Applicant: LONG GROVE PHARMACEUTICALS LLC
Approved: Jan 29, 2008 | RLD: No | RS: No | Type: DISCN